FAERS Safety Report 10947331 (Version 3)
Quarter: 2015Q2

REPORT INFORMATION
  Report Type: Spontaneous
  Country: AT (occurrence: AT)
  Receive Date: 20150323
  Receipt Date: 20150422
  Transmission Date: 20150821
  Serious: Yes (Hospitalization)
  Sender: FDA-Public Use
  Company Number: AT-ROCHE-1555211

PATIENT
  Sex: Female
  Weight: 78 kg

DRUGS (13)
  1. LOVENOX [Concomitant]
     Active Substance: ENOXAPARIN SODIUM
  2. AVASTIN [Suspect]
     Active Substance: BEVACIZUMAB
     Route: 042
     Dates: start: 20150123, end: 20150123
  3. PACLITAXEL. [Suspect]
     Active Substance: PACLITAXEL
     Indication: BREAST CANCER METASTATIC
     Route: 042
  4. EUTHYROX [Concomitant]
     Active Substance: LEVOTHYROXINE SODIUM
  5. AVASTIN [Suspect]
     Active Substance: BEVACIZUMAB
     Route: 042
     Dates: start: 20150206, end: 20150206
  6. AMLODIPIN [Concomitant]
     Active Substance: AMLODIPINE BESYLATE
  7. ITERIUM [Concomitant]
     Active Substance: RILMENIDINE
  8. AVASTIN [Suspect]
     Active Substance: BEVACIZUMAB
     Indication: BREAST CANCER METASTATIC
     Route: 042
     Dates: start: 20141121, end: 20141121
  9. PANTOLOC [Concomitant]
     Active Substance: PANTOPRAZOLE SODIUM
  10. TEVETEN [Concomitant]
     Active Substance: EPROSARTAN MESYLATE
  11. CONCOR [Concomitant]
     Active Substance: BISOPROLOL FUMARATE
  12. AVASTIN [Suspect]
     Active Substance: BEVACIZUMAB
     Route: 042
     Dates: start: 20141218, end: 20141218
  13. AVASTIN [Suspect]
     Active Substance: BEVACIZUMAB
     Route: 042
     Dates: start: 20150109, end: 20150109

REACTIONS (2)
  - Cataract [Unknown]
  - Vertigo [Recovering/Resolving]
